FAERS Safety Report 8566720-2 (Version None)
Quarter: 2012Q3

REPORT INFORMATION
  Report Type: 
  Country: None (occurrence: None)
  Receive Date: 20120803
  Receipt Date: 20111027
  Transmission Date: 20120928
  Serious: No
  Sender: FDA-Public Use
  Company Number: US-ABBOTT-11P-163-0869665-00

PATIENT
  Age: 46 Year
  Sex: Male
  Weight: 119.4 kg

DRUGS (5)
  1. NIASPAN [Suspect]
     Indication: BLOOD CHOLESTEROL
     Dates: start: 20111001
  2. INSULIN [Concomitant]
     Indication: DIABETES MELLITUS
  3. BENICAR [Concomitant]
     Indication: BLOOD PRESSURE
  4. METFORMIN HYDROCHLORIDE [Concomitant]
     Indication: DIABETES MELLITUS
  5. GLIPIZIDE [Concomitant]
     Indication: DIABETES MELLITUS

REACTIONS (8)
  - ABDOMINAL PAIN UPPER [None]
  - ABDOMINAL DISTENSION [None]
  - DIARRHOEA [None]
  - VOMITING [None]
  - DYSGEUSIA [None]
  - FLATULENCE [None]
  - ASTHENIA [None]
  - BLOOD GLUCOSE INCREASED [None]
